FAERS Safety Report 4628981-1 (Version None)
Quarter: 2005Q2

REPORT INFORMATION
  Report Type: 
  Country: None (occurrence: None)
  Receive Date: 20050405
  Receipt Date: 20050405
  Transmission Date: 20051028
  Serious: Yes (Life-Threatening, Hospitalization, Disabling)
  Sender: FDA-Public Use
  Company Number: None

PATIENT
  Sex: Female
  Weight: 58.9676 kg

DRUGS (6)
  1. BOTULINUM TOXIN TYPE B (MYOBLOC BY ELAN) [Suspect]
     Indication: INTERVERTEBRAL DISC DISORDER
     Dosage: 11000 UNITS TOTAL
     Dates: start: 20030324
  2. LIBRAX [Concomitant]
  3. OXYCONTIN [Concomitant]
  4. MORPHINE [Concomitant]
  5. PERCOCET [Concomitant]
  6. XANAX [Concomitant]

REACTIONS (13)
  - ABASIA [None]
  - AMNESIA [None]
  - BEDRIDDEN [None]
  - BRAIN DAMAGE [None]
  - CEREBROVASCULAR ACCIDENT [None]
  - EYELID PTOSIS [None]
  - INTESTINAL FUNCTIONAL DISORDER [None]
  - LOSS OF CONSCIOUSNESS [None]
  - MEDICATION ERROR [None]
  - MICTURITION DISORDER [None]
  - PARALYSIS [None]
  - SCREAMING [None]
  - SPEECH DISORDER [None]
